FAERS Safety Report 7294165-4 (Version None)
Quarter: 2011Q1

REPORT INFORMATION
  Report Type: 
  Country: None (occurrence: None)
  Receive Date: 20110215
  Receipt Date: 20110210
  Transmission Date: 20110831
  Serious: Yes (Other)
  Sender: FDA-Public Use
  Company Number: ZA-PFIZER INC-2011013801

PATIENT
  Age: 56 Year
  Sex: Female

DRUGS (10)
  1. ASPIRIN [Suspect]
     Dosage: 81 MG, UNK
     Route: 048
  2. LYRICA [Suspect]
     Indication: NEURALGIA
     Dosage: 75 MG, 1X/DAY
     Route: 048
     Dates: start: 20110101
  3. ASPAVOR [Concomitant]
     Dosage: UNK
     Route: 048
     Dates: start: 20050101
  4. STILNOX [Concomitant]
     Dosage: UNK
     Route: 048
     Dates: start: 20090101
  5. CRESTOR [Concomitant]
     Dosage: UNK
     Route: 048
     Dates: start: 20060101
  6. TREPILINE [Concomitant]
     Dosage: UNK
     Route: 048
     Dates: start: 20100101
  7. BRAZEPAM [Concomitant]
     Dosage: UNK
     Route: 048
     Dates: start: 20090101
  8. CILIFT [Concomitant]
     Dosage: UNK
     Route: 048
     Dates: start: 20090101
  9. IVEDAL [Concomitant]
     Dosage: UNK
     Route: 048
     Dates: start: 20100101
  10. EVOREL [Concomitant]
     Route: 061

REACTIONS (7)
  - ARTERIAL RUPTURE [None]
  - SKIN DISCOLOURATION [None]
  - SKIN SWELLING [None]
  - OCULAR HYPERAEMIA [None]
  - PAIN OF SKIN [None]
  - PAIN IN EXTREMITY [None]
  - PURPURA [None]
